FAERS Safety Report 11853702 (Version 1)
Quarter: 2015Q4

REPORT INFORMATION
  Report Type: Spontaneous
  Country: US (occurrence: US)
  Receive Date: 20151219
  Receipt Date: 20151219
  Transmission Date: 20160305
  Serious: No
  Sender: FDA-Public Use
  Company Number: US-TEVA-618867ACC

PATIENT
  Age: 28 Year
  Sex: Female
  Weight: 68.1 kg

DRUGS (1)
  1. PLAN B ONE-STEP [Suspect]
     Active Substance: LEVONORGESTREL
     Indication: POST COITAL CONTRACEPTION
     Dates: start: 20150930, end: 20150930

REACTIONS (4)
  - Polymenorrhoea [Recovered/Resolved]
  - Ovarian cyst [Unknown]
  - Amenorrhoea [Not Recovered/Not Resolved]
  - Abdominal pain upper [Not Recovered/Not Resolved]

NARRATIVE: CASE EVENT DATE: 20150930
